FAERS Safety Report 6965977-9 (Version None)
Quarter: 2010Q3

REPORT INFORMATION
  Report Type: 
  Country: None (occurrence: None)
  Receive Date: 20100903
  Receipt Date: 20100830
  Transmission Date: 20110219
  Serious: Yes (Other)
  Sender: FDA-Public Use
  Company Number: US-ROXANE LABORATORIES, INC.-2010-RO-01156RO

PATIENT
  Age: 19 Year
  Sex: Female

DRUGS (3)
  1. MYCOPHENOLATE MOFETIL [Suspect]
     Indication: LUPUS NEPHRITIS
     Dosage: 2500 MG
  2. PREDNISONE [Suspect]
     Indication: LUPUS NEPHRITIS
     Dosage: 30 MG
  3. FK 506 [Suspect]
     Indication: LUPUS NEPHRITIS
     Dosage: 2 MG

REACTIONS (4)
  - BLOOD CHOLESTEROL INCREASED [None]
  - DRUG INEFFECTIVE FOR UNAPPROVED INDICATION [None]
  - DRUG TOXICITY [None]
  - MYALGIA [None]
